FAERS Safety Report 9435357 (Version 5)
Quarter: 2015Q1

REPORT INFORMATION
  Report Type: Report from Study
  Country: JP (occurrence: JP)
  Receive Date: 20130801
  Receipt Date: 20150331
  Transmission Date: 20150721
  Serious: Yes (Other)
  Sender: FDA-Public Use
  Company Number: JP-BAYER-2013-093227

PATIENT
  Age: 67 Year
  Sex: Male
  Weight: 78 kg

DRUGS (7)
  1. LOXONIN [Concomitant]
     Active Substance: LOXOPROFEN SODIUM
     Dosage: DAILY DOSE 180 MG
     Route: 048
     Dates: start: 20130719
  2. RENIVACE [Concomitant]
     Active Substance: ENALAPRIL
     Dosage: DAILY DOSE 5 MG
     Route: 048
  3. ADALAT CC [Concomitant]
     Active Substance: NIFEDIPINE
     Dosage: DAILY DOSE 20 MG
     Route: 048
  4. VASELINE PURE [Concomitant]
     Active Substance: PETROLATUM
     Indication: DRUG TOXICITY PROPHYLAXIS
     Dosage: UNK
     Route: 061
     Dates: start: 20130726, end: 20130802
  5. HIRUDOID [Concomitant]
     Active Substance: GLYCOSAMINOGLYCANS
     Indication: DRUG TOXICITY PROPHYLAXIS
     Dosage: UNK
     Route: 061
     Dates: start: 20130712, end: 20130726
  6. STIVARGA [Suspect]
     Active Substance: REGORAFENIB
     Indication: COLON CANCER
     Dosage: DURING 3 WEEKS AND ONE WEEK OFF
     Route: 048
     Dates: start: 20130712, end: 20131018
  7. MUCOSTA [Concomitant]
     Active Substance: REBAMIPIDE
     Dosage: DAILY DOSE 300 MG
     Route: 048
     Dates: start: 20130719

REACTIONS (7)
  - Deafness [Not Recovered/Not Resolved]
  - Dysphonia [Not Recovered/Not Resolved]
  - White blood cell count increased [Recovered/Resolved]
  - Malaise [Not Recovered/Not Resolved]
  - Diarrhoea [Recovering/Resolving]
  - Diarrhoea [Recovered/Resolved]
  - C-reactive protein increased [Recovered/Resolved]

NARRATIVE: CASE EVENT DATE: 20130715
